FAERS Safety Report 10023752 (Version 1)
Quarter: 2014Q1

REPORT INFORMATION
  Report Type: Spontaneous
  Country: US (occurrence: US)
  Receive Date: 20140320
  Receipt Date: 20140320
  Transmission Date: 20141002
  Serious: Yes (Other)
  Sender: FDA-Public Use
  Company Number: US-BAYER-2014-041653

PATIENT
  Age: 48 Year
  Sex: Female
  Weight: 51.7 kg

DRUGS (4)
  1. YASMIN [Suspect]
  2. PREDNISONE [Concomitant]
     Dosage: 20 MG, UNK
  3. PREDNISONE [Concomitant]
     Dosage: 5 MG, UNK
  4. ASPIRIN [Concomitant]

REACTIONS (1)
  - Deep vein thrombosis [Recovering/Resolving]
